FAERS Safety Report 9147946 (Version 1)
Quarter: 2013Q1

REPORT INFORMATION
  Report Type: Spontaneous
  Country: US (occurrence: US)
  Receive Date: 20130228
  Receipt Date: 20130228
  Transmission Date: 20140127
  Serious: Yes (Hospitalization)
  Sender: FDA-Public Use
  Company Number: US-RB-047445-12

PATIENT
  Age: 42 Year
  Sex: Male

DRUGS (2)
  1. SUBUTEX [Suspect]
     Indication: DRUG DEPENDENCE
     Dosage: DOSING DETAILS UNKNOWN; 1 DOSE
     Route: 060
  2. METHADONE [Suspect]
     Indication: DRUG DEPENDENCE
     Route: 048

REACTIONS (5)
  - Formication [Recovered/Resolved]
  - Anxiety [Recovered/Resolved]
  - Drug withdrawal syndrome [Recovered/Resolved]
  - Faecal incontinence [Recovered/Resolved]
  - Restlessness [Recovered/Resolved]
